FAERS Safety Report 6918095-X (Version None)
Quarter: 2010Q3

REPORT INFORMATION
  Report Type: 
  Country: None (occurrence: None)
  Receive Date: 20100810
  Receipt Date: 20100809
  Transmission Date: 20110219
  Serious: Yes (Death)
  Sender: FDA-Public Use
  Company Number: GB-GILEAD-2010-0030915

PATIENT
  Age: 43 Year
  Sex: Male

DRUGS (5)
  1. TRUVADA [Suspect]
     Indication: PRODUCT USED FOR UNKNOWN INDICATION
  2. SUSTIVA [Suspect]
     Dates: start: 20031201
  3. DAPSONE [Concomitant]
  4. ERYTHROMYCIN [Concomitant]
  5. ZOPICLONE [Concomitant]

REACTIONS (1)
  - COMPLETED SUICIDE [None]
